FAERS Safety Report 11029992 (Version 1)
Quarter: 2015Q2

REPORT INFORMATION
  Report Type: Spontaneous
  Country: US (occurrence: US)
  Receive Date: 20150415
  Receipt Date: 20150415
  Transmission Date: 20150821
  Serious: No
  Sender: FDA-Public Use
  Company Number: US-BIOGENIDEC-2015BI043297

PATIENT
  Age: 64 Year
  Sex: Female

DRUGS (14)
  1. ASPIRIN LOW DOSE [Concomitant]
     Active Substance: ASPIRIN
  2. FUROSEMIDE. [Concomitant]
     Active Substance: FUROSEMIDE
  3. NOVOLOG [Concomitant]
     Active Substance: INSULIN ASPART
  4. SIMVASTATIN. [Concomitant]
     Active Substance: SIMVASTATIN
  5. BACLOFEN. [Concomitant]
     Active Substance: BACLOFEN
  6. GABAPENTIN. [Concomitant]
     Active Substance: GABAPENTIN
  7. LANTUS SOLOSTAR [Concomitant]
     Active Substance: INSULIN GLARGINE
  8. OXYBUTININ CHLORIDE [Concomitant]
  9. CIPROFLOXACIN HCI [Concomitant]
  10. CLANAZEPAM [Concomitant]
  11. TECFIDERA [Suspect]
     Active Substance: DIMETHYL FUMARATE
     Indication: MULTIPLE SCLEROSIS
     Route: 048
  12. DULOXETINE HCI [Concomitant]
  13. LISINOPRIL. [Concomitant]
     Active Substance: LISINOPRIL
  14. OMEPRAZOLE. [Concomitant]
     Active Substance: OMEPRAZOLE

REACTIONS (1)
  - Eye disorder [Unknown]

NARRATIVE: CASE EVENT DATE: 20150325
